FAERS Safety Report 7333181-0 (Version None)
Quarter: 2011Q1

REPORT INFORMATION
  Report Type: 
  Country: None (occurrence: None)
  Receive Date: 20110304
  Receipt Date: 20110225
  Transmission Date: 20110831
  Serious: Yes (Hospitalization, Other)
  Sender: FDA-Public Use
  Company Number: US-US-EMD SERONO, INC.-7044302

PATIENT
  Sex: Female
  Weight: 104 kg

DRUGS (5)
  1. ALEVE [Concomitant]
     Indication: PREMEDICATION
  2. ASPIRIN [Concomitant]
     Indication: PROPHYLAXIS
  3. REBIF [Suspect]
     Indication: MULTIPLE SCLEROSIS
     Route: 058
     Dates: start: 20100509
  4. ALBUTEROL [Concomitant]
     Indication: ASTHMA
  5. ADVAIR DISKUS 100/50 [Concomitant]
     Indication: ASTHMA
     Dates: start: 20100101

REACTIONS (5)
  - INJECTION SITE ERYTHEMA [None]
  - MULTIPLE SCLEROSIS RELAPSE [None]
  - PAIN [None]
  - BRONCHITIS [None]
  - NOSOCOMIAL INFECTION [None]
